FAERS Safety Report 8171148-3 (Version None)
Quarter: 2012Q1

REPORT INFORMATION
  Report Type: 
  Country: None (occurrence: None)
  Receive Date: 20120228
  Receipt Date: 20111108
  Transmission Date: 20120608
  Serious: No
  Sender: FDA-Public Use
  Company Number: US-BRISTOL-MYERS SQUIBB COMPANY-16189748

PATIENT
  Age: 67 Year
  Sex: Male

DRUGS (7)
  1. ATENOLOL [Concomitant]
  2. NIFEDIPINE [Concomitant]
  3. ZOCOR [Concomitant]
  4. ONGLYZA [Suspect]
     Indication: DIABETES MELLITUS
     Route: 048
     Dates: start: 20110601
  5. GLYBURIDE [Concomitant]
  6. METFORMIN HCL [Concomitant]
  7. ASPIRIN [Concomitant]

REACTIONS (1)
  - COUGH [None]
